FAERS Safety Report 8814663 (Version 1)
Quarter: 2012Q4

REPORT INFORMATION
  Report Type: Report from Study
  Country: JP (occurrence: JP)
  Receive Date: 20120928
  Receipt Date: 20120928
  Transmission Date: 20130627
  Serious: Yes (Other)
  Sender: FDA-Public Use
  Company Number: JP-009507513-1209JPN009265

PATIENT
  Age: 69 Year
  Sex: Male
  Weight: 67 kg

DRUGS (17)
  1. PEGINTRON [Suspect]
     Indication: HEPATITIS C
     Dosage: 1.5 Microgram per kilogram, qw
     Route: 058
     Dates: start: 20120307, end: 20120627
  2. PEGINTRON [Suspect]
     Dosage: 80microgram per body, daily dose unknown
     Route: 058
     Dates: start: 20120704, end: 20120718
  3. REBETOL [Suspect]
     Indication: HEPATITIS C
     Dosage: 600 mg, qd
     Route: 048
     Dates: start: 20120307, end: 20120320
  4. REBETOL [Suspect]
     Dosage: 400 mg, qd
     Route: 048
     Dates: start: 20120321, end: 20120410
  5. REBETOL [Suspect]
     Dosage: 200 mg, qd
     Route: 048
     Dates: start: 20120411, end: 20120418
  6. REBETOL [Suspect]
     Dosage: 200mg/ 2 every other day,Daily dose unknown
     Route: 048
     Dates: start: 20120419, end: 20120612
  7. REBETOL [Suspect]
     Dosage: 200 mg, qd
     Route: 048
     Dates: start: 20120613, end: 20120724
  8. REBETOL [Suspect]
     Dosage: UNK
  9. TELAVIC [Suspect]
     Indication: HEPATITIS C
     Dosage: 1500mg,qd, cumulative dose 6000mg
     Route: 048
     Dates: start: 20120307, end: 20120424
  10. TELAVIC [Suspect]
     Dosage: 1000mg,qd
     Route: 048
     Dates: start: 20120425, end: 20120530
  11. OMEPRAZON [Concomitant]
     Indication: PROPHYLAXIS
     Dosage: 10 mg, qd
     Route: 048
  12. MYSLEE [Concomitant]
     Indication: INSOMNIA
     Dosage: As needed 2.5mg/ day.daily dose unknown
     Route: 048
  13. MYSLEE [Concomitant]
     Dosage: 10 mg, qd,formulation POR
  14. BENECID [Concomitant]
     Indication: HYPERURICAEMIA
     Dosage: 250 mg, qd,formulation:POR
     Dates: end: 20120613
  15. LOXONIN [Concomitant]
     Indication: PROPHYLAXIS
     Dosage: As needed 60mg/day.daily dose unknown,formulation:POR
     Route: 048
     Dates: start: 20120324
  16. ZYLORIC [Concomitant]
     Dosage: 100 mg, qd,formulation:POR
     Route: 048
  17. [THERAPY UNSPECIFIED] [Concomitant]
     Dosage: 150 mg, qd,formulation:POR
     Route: 048
     Dates: end: 20120613

REACTIONS (2)
  - Depression [Recovering/Resolving]
  - Anaemia [Recovering/Resolving]
